FAERS Safety Report 13570166 (Version 2)
Quarter: 2017Q3

REPORT INFORMATION
  Report Type: Spontaneous
  Country: US (occurrence: US)
  Receive Date: 20170522
  Receipt Date: 20170905
  Transmission Date: 20171127
  Serious: No
  Sender: FDA-Public Use
  Company Number: US-BIOGEN-2017BI00402111

PATIENT
  Sex: Female

DRUGS (2)
  1. TYSABRI [Suspect]
     Active Substance: NATALIZUMAB
     Indication: MULTIPLE SCLEROSIS
     Route: 065
     Dates: start: 20090518, end: 20130605
  2. TYSABRI [Suspect]
     Active Substance: NATALIZUMAB
     Route: 065
     Dates: start: 20160316, end: 20170227

REACTIONS (3)
  - Device related thrombosis [Recovered/Resolved]
  - Central venous catheterisation [Recovered/Resolved]
  - Gastric disorder [Recovered/Resolved]
